FAERS Safety Report 20329967 (Version 2)
Quarter: 2022Q1

REPORT INFORMATION
  Report Type: Spontaneous
  Country: CO (occurrence: CO)
  Receive Date: 20220113
  Receipt Date: 20220124
  Transmission Date: 20220423
  Serious: Yes (Hospitalization)
  Sender: FDA-Public Use
  Company Number: CO-AUROBINDO-AUR-APL-2022-001008

PATIENT
  Age: 78 Year
  Sex: Male

DRUGS (1)
  1. PRALATREXATE [Suspect]
     Active Substance: PRALATREXATE
     Indication: Peripheral T-cell lymphoma unspecified
     Dosage: 1 DOSAGE FORM (ONCE WEEKLY) EVERY WEEK
     Route: 042
     Dates: start: 20211201, end: 20211216

REACTIONS (1)
  - Arthralgia [Recovered/Resolved]

NARRATIVE: CASE EVENT DATE: 20211223
